FAERS Safety Report 15309074 (Version 1)
Quarter: 2018Q3

REPORT INFORMATION
  Report Type: Spontaneous
  Country: US (occurrence: US)
  Receive Date: 20180823
  Receipt Date: 20180823
  Transmission Date: 20181010
  Serious: No
  Sender: FDA-Public Use
  Company Number: US-CIPLA LTD.-2017US13728

PATIENT

DRUGS (3)
  1. VITAMIN D                          /00107901/ [Concomitant]
     Active Substance: ERGOCALCIFEROL
     Indication: PRODUCT USED FOR UNKNOWN INDICATION
     Route: 065
  2. FISH OIL [Concomitant]
     Active Substance: FISH OIL
     Indication: PRODUCT USED FOR UNKNOWN INDICATION
     Route: 065
  3. GEMFIBROZIL. [Suspect]
     Active Substance: GEMFIBROZIL
     Indication: BLOOD TRIGLYCERIDES INCREASED
     Dosage: 600 MG, HALF TABLET ONCE A DAY
     Route: 048
     Dates: start: 20170731, end: 20170731

REACTIONS (4)
  - Gastrointestinal pain [Recovered/Resolved]
  - Pain [Recovered/Resolved]
  - Diarrhoea [Recovered/Resolved]
  - Wrong technique in product usage process [Unknown]

NARRATIVE: CASE EVENT DATE: 20170731
